FAERS Safety Report 18641035 (Version 1)
Quarter: 2020Q4

REPORT INFORMATION
  Report Type: Other
  Country: CA (occurrence: CA)
  Receive Date: 20201221
  Receipt Date: 20201221
  Transmission Date: 20210114
  Serious: Yes (Other)
  Sender: FDA-Public Use
  Company Number: CA-CELLTRION INC.-2020CA033815

PATIENT

DRUGS (5)
  1. RITUXIMAB (UNKNOWN) [Suspect]
     Active Substance: RITUXIMAB
     Indication: THROMBOTIC THROMBOCYTOPENIC PURPURA
     Dosage: 375 MG/M2, 1 EVERY 1 WEEK
     Route: 042
  2. BORTEZOMIB. [Suspect]
     Active Substance: BORTEZOMIB
     Indication: THROMBOTIC THROMBOCYTOPENIC PURPURA
     Dosage: 3.1 MG
     Route: 042
  3. PROCYTOX [Suspect]
     Active Substance: CYCLOPHOSPHAMIDE
     Indication: THROMBOTIC THROMBOCYTOPENIC PURPURA
     Dosage: 750 MG
     Route: 042
  4. CICLOSPORIN [Suspect]
     Active Substance: CYCLOSPORINE
     Indication: DRUG THERAPY
     Dosage: 300 MG
     Route: 048
  5. METHYLPREDNISOLONE. [Suspect]
     Active Substance: METHYLPREDNISOLONE
     Indication: THROMBOTIC THROMBOCYTOPENIC PURPURA
     Dosage: 100 MG
     Route: 065

REACTIONS (12)
  - Candida infection [Unknown]
  - Pneumonia klebsiella [Unknown]
  - Hemianopia [Unknown]
  - Brain oedema [Unknown]
  - Cerebral infarction [Unknown]
  - Device related sepsis [Unknown]
  - Empyema [Unknown]
  - Staphylococcal infection [Unknown]
  - Off label use [Unknown]
  - Abdominal abscess [Unknown]
  - Therapy non-responder [Unknown]
  - Enterococcal infection [Unknown]
